FAERS Safety Report 8000559-1 (Version None)
Quarter: 2011Q4

REPORT INFORMATION
  Report Type: 
  Country: None (occurrence: None)
  Receive Date: 20111222
  Receipt Date: 20111219
  Transmission Date: 20120403
  Serious: Yes (Other)
  Sender: FDA-Public Use
  Company Number: BR-BAYER-2011-114255

PATIENT
  Age: 72 Year
  Sex: Female
  Weight: 80 kg

DRUGS (8)
  1. CIPROFLOXACIN [Suspect]
     Indication: URINARY TRACT INFECTION
     Dosage: UNK
     Route: 048
     Dates: start: 20111123
  2. CIPROFLOXACIN [Concomitant]
     Dosage: UNK
     Route: 042
     Dates: start: 20111116, end: 20111122
  3. CLONAZEPAM [Concomitant]
     Indication: CARDIAC DISORDER
     Dosage: UNK
     Route: 048
  4. CARVEDILOL [Concomitant]
     Indication: CARDIAC DISORDER
     Dosage: UNK
     Route: 048
  5. SPIRONOLACTONE [Concomitant]
     Indication: CARDIAC DISORDER
     Dosage: UNK
     Route: 048
  6. METFORMIN HYDROCHLORIDE [Concomitant]
     Indication: CARDIAC DISORDER
     Dosage: UNK
     Route: 048
  7. WARFARIN SODIUM [Concomitant]
     Indication: CARDIAC DISORDER
     Dosage: 1 DF, BID
     Route: 048
  8. SIMVASTATIN [Concomitant]
     Indication: CARDIAC DISORDER
     Dosage: UNK
     Route: 048

REACTIONS (2)
  - URINARY TRACT INFECTION [None]
  - CYSTITIS [None]
